FAERS Safety Report 7292002-5 (Version None)
Quarter: 2011Q1

REPORT INFORMATION
  Report Type: 
  Country: None (occurrence: None)
  Receive Date: 20110215
  Receipt Date: 20110204
  Transmission Date: 20110831
  Serious: Yes (Hospitalization)
  Sender: FDA-Public Use
  Company Number: US-BIOGENIDEC-2010BI028437

PATIENT
  Age: 60 Year
  Sex: Female
  Weight: 70 kg

DRUGS (22)
  1. IMDUR [Concomitant]
     Indication: PRODUCT USED FOR UNKNOWN INDICATION
  2. NITROGLYCERIN [Concomitant]
     Indication: PRODUCT USED FOR UNKNOWN INDICATION
     Route: 060
  3. AMANTADINE HCL [Concomitant]
     Indication: PRODUCT USED FOR UNKNOWN INDICATION
  4. OMEPRAZOLE [Concomitant]
     Indication: PRODUCT USED FOR UNKNOWN INDICATION
  5. FISH OIL [Concomitant]
     Indication: PRODUCT USED FOR UNKNOWN INDICATION
  6. PRILOSEC [Concomitant]
     Indication: PRODUCT USED FOR UNKNOWN INDICATION
  7. MIRALAX [Concomitant]
     Indication: PRODUCT USED FOR UNKNOWN INDICATION
  8. ISOSORBIDE DINITRATE [Concomitant]
     Indication: PRODUCT USED FOR UNKNOWN INDICATION
  9. OXYCODONE HCL [Concomitant]
     Indication: PRODUCT USED FOR UNKNOWN INDICATION
  10. TIKOSYN [Concomitant]
  11. CALCIUM [Concomitant]
     Indication: PRODUCT USED FOR UNKNOWN INDICATION
  12. MULTI-VITAMIN [Concomitant]
  13. VITAMIN D [Concomitant]
     Indication: PRODUCT USED FOR UNKNOWN INDICATION
  14. DARVOCET-N 100 [Concomitant]
     Indication: PRODUCT USED FOR UNKNOWN INDICATION
  15. TYSABRI [Suspect]
     Indication: MULTIPLE SCLEROSIS
     Route: 042
     Dates: start: 20100806
  16. METROPOLOL [Concomitant]
     Indication: PRODUCT USED FOR UNKNOWN INDICATION
  17. METRONIDAZOLE [Concomitant]
     Indication: PRODUCT USED FOR UNKNOWN INDICATION
  18. BACLOFEN [Concomitant]
     Indication: PRODUCT USED FOR UNKNOWN INDICATION
  19. ASPIRIN [Concomitant]
     Indication: PRODUCT USED FOR UNKNOWN INDICATION
  20. GLUCOSAMINE [Concomitant]
     Indication: PRODUCT USED FOR UNKNOWN INDICATION
  21. VITAMIN B-12 [Concomitant]
     Indication: PRODUCT USED FOR UNKNOWN INDICATION
     Route: 060
  22. SIMVASTATIN [Concomitant]

REACTIONS (9)
  - ANXIETY [None]
  - ABASIA [None]
  - VISUAL IMPAIRMENT [None]
  - PYREXIA [None]
  - HYPERSENSITIVITY [None]
  - SPEECH DISORDER [None]
  - ATRIAL TACHYCARDIA [None]
  - TOOTH ABSCESS [None]
  - MOBILITY DECREASED [None]
